FAERS Safety Report 11656788 (Version 1)
Quarter: 2015Q4

REPORT INFORMATION
  Report Type: Spontaneous
  Country: CA (occurrence: CA)
  Receive Date: 20151023
  Receipt Date: 20151023
  Transmission Date: 20160304
  Serious: Yes (Disabling)
  Sender: FDA-Public Use
  Company Number: CA-TEVA-601955ACC

PATIENT
  Age: 69 Year
  Sex: Female
  Weight: 52 kg

DRUGS (4)
  1. NIACIN. [Concomitant]
     Active Substance: NIACIN
  2. DHA [Concomitant]
     Active Substance: DIETARY SUPPLEMENT
  3. TRAZODONE [Concomitant]
     Active Substance: TRAZODONE HYDROCHLORIDE
  4. BUPROPION. [Suspect]
     Active Substance: BUPROPION
     Indication: SMOKING CESSATION THERAPY
     Dosage: 300 MILLIGRAM DAILY;
     Route: 048

REACTIONS (5)
  - Dizziness [Unknown]
  - Headache [Unknown]
  - Loss of consciousness [Unknown]
  - Fall [Unknown]
  - Drug withdrawal syndrome [Unknown]
